FAERS Safety Report 23576010 (Version 6)
Quarter: 2024Q2

REPORT INFORMATION
  Report Type: Spontaneous
  Country: US (occurrence: US)
  Receive Date: 20240228
  Receipt Date: 20240610
  Transmission Date: 20240716
  Serious: Yes (Other)
  Sender: FDA-Public Use
  Company Number: US-PFIZER INC-PV202400027112

PATIENT
  Age: 75 Year
  Sex: Female

DRUGS (13)
  1. IBRANCE [Suspect]
     Active Substance: PALBOCICLIB
     Indication: Breast cancer metastatic
     Dosage: 125 MG, 1X/DAY
     Dates: start: 2024
  2. IBRANCE [Suspect]
     Active Substance: PALBOCICLIB
     Dosage: 75 MG
  3. IBRANCE [Suspect]
     Active Substance: PALBOCICLIB
     Dosage: 100 MG
  4. LOSARTAN [Concomitant]
     Active Substance: LOSARTAN
     Indication: Cardiac disorder
     Dosage: 50 MG, DAILY
  5. CARVEDILOL [Concomitant]
     Active Substance: CARVEDILOL
     Indication: Cardiac disorder
     Dosage: UNK, 2X/DAY (12.5 MG 1.5 TABLET TWO TIMES DAILY)
  6. TORSEMIDE [Concomitant]
     Active Substance: TORSEMIDE
     Indication: Cardiac disorder
     Dosage: 70 MG, DAILY (40MG IN THE MORNING AND 30MG IN AFTERNOON)
  7. KLOR-CON [Concomitant]
     Active Substance: POTASSIUM CHLORIDE
     Indication: Cardiac disorder
     Dosage: 30 MEQ, DAILY (10MEQ TWO IN THE MORNINGS AND ONE IN THE AFTERNOON)
  8. WARFARIN [Concomitant]
     Active Substance: WARFARIN
     Indication: Cardiac disorder
     Dosage: TAKES 7.5MG EVERY DAY EXCEPT FRIDAY WHEN SHE TAKES 10MG
  9. WARFARIN [Concomitant]
     Active Substance: WARFARIN
     Dosage: TAKES 7.5MG EVERY DAY EXCEPT FRIDAY WHEN SHE TAKES 10MG
  10. SPIRONOLACTONE [Concomitant]
     Active Substance: SPIRONOLACTONE
     Dosage: 25 MG, DAILY
  11. CALCIUM [Concomitant]
     Active Substance: CALCIUM
     Dosage: UNK UNK, 2X/DAY (UNK (CALCIUM 600 WITH VITAMIN D TWICE PER DAY)
  12. ERGOCALCIFEROL [Concomitant]
     Active Substance: ERGOCALCIFEROL
     Dosage: UNK UNK, 2X/DAY (TWICE PER DAY)
  13. MAGNESIUM [Concomitant]
     Active Substance: MAGNESIUM
     Dosage: UNK UNK, 2X/DAY (UNK (500 TWICE PER DAY)

REACTIONS (11)
  - Immunodeficiency [Unknown]
  - Hip fracture [Unknown]
  - Neutropenia [Unknown]
  - Renal impairment [Unknown]
  - Haemoglobin decreased [Unknown]
  - Platelet count decreased [Unknown]
  - White blood cell count decreased [Unknown]
  - Glomerular filtration rate abnormal [Not Recovered/Not Resolved]
  - Upper-airway cough syndrome [Unknown]
  - Cough [Unknown]
  - Drug intolerance [Unknown]
